FAERS Safety Report 8620242 (Version 4)
Quarter: 2015Q2

REPORT INFORMATION
  Report Type: Spontaneous
  Country: US (occurrence: US)
  Receive Date: 20120618
  Receipt Date: 20150609
  Transmission Date: 20150821
  Serious: No
  Sender: FDA-Public Use
  Company Number: US-ASTRAZENECA-2012SE37801

PATIENT
  Sex: Male

DRUGS (4)
  1. TENORMIN [Suspect]
     Active Substance: ATENOLOL
     Dosage: 50 MG ONCE OR TWICE A DAY
     Route: 048
  2. ATACAND [Suspect]
     Active Substance: CANDESARTAN CILEXETIL
     Dosage: GENERIC CANDESARTAN CILEXETIL
     Route: 048
  3. TENORMIN [Suspect]
     Active Substance: ATENOLOL
     Dosage: GENERIC ATENOLOL
     Route: 048
  4. ATACAND [Suspect]
     Active Substance: CANDESARTAN CILEXETIL
     Route: 048

REACTIONS (7)
  - Drug ineffective [Unknown]
  - Communication disorder [Unknown]
  - Drug hypersensitivity [Unknown]
  - Diabetes mellitus [Unknown]
  - Pain in extremity [Unknown]
  - Angina pectoris [Unknown]
  - Fear of death [Unknown]
